FAERS Safety Report 8107425-1 (Version None)
Quarter: 2012Q1

REPORT INFORMATION
  Report Type: 
  Country: None (occurrence: None)
  Receive Date: 20120202
  Receipt Date: 20120124
  Transmission Date: 20120608
  Serious: Yes (Other)
  Sender: FDA-Public Use
  Company Number: US-ELI_LILLY_AND_COMPANY-US201201008120

PATIENT
  Age: 64 Year
  Sex: Male

DRUGS (9)
  1. LASIX [Concomitant]
  2. EFFIENT [Suspect]
     Indication: STENT PLACEMENT
     Dosage: 10 MG, QD
     Dates: start: 20120101
  3. PREDNISONE TAB [Concomitant]
  4. COUMADIN [Concomitant]
  5. LOPRESSOR [Concomitant]
  6. ZOCOR [Concomitant]
  7. VENTOLIN [Concomitant]
  8. ASPIRIN [Concomitant]
     Dosage: 81 MG, UNK
  9. ALDACTONE [Concomitant]

REACTIONS (2)
  - CARDIAC PACEMAKER INSERTION [None]
  - IMPAIRED HEALING [None]
